FAERS Safety Report 6357259-3 (Version None)
Quarter: 2009Q3

REPORT INFORMATION
  Report Type: 
  Country: None (occurrence: None)
  Receive Date: 20090916
  Receipt Date: 20090903
  Transmission Date: 20100115
  Serious: Yes (Other)
  Sender: FDA-Public Use
  Company Number: PHHY2009BR37662

PATIENT
  Age: 77 Year
  Sex: Female
  Weight: 67 kg

DRUGS (4)
  1. DIOVAN TRIPLE [Suspect]
     Indication: HYPERTENSION
     Dosage: 1 DF, QD
     Dates: start: 20090828
  2. CAPTOPRIL [Suspect]
     Dosage: 50 MG, QID
  3. CAPTOPRIL [Suspect]
     Dosage: HALF TABLET (25 MG)
     Route: 060
  4. LEXOTAN [Concomitant]
     Dosage: 3 TABLETS (3 MG) DAILY

REACTIONS (14)
  - ABDOMINAL PAIN UPPER [None]
  - ANXIETY [None]
  - BLOOD PRESSURE INCREASED [None]
  - DIZZINESS [None]
  - DYSGEUSIA [None]
  - ERUCTATION [None]
  - FAECES PALE [None]
  - FLATULENCE [None]
  - GALLBLADDER DISORDER [None]
  - HYPOAESTHESIA ORAL [None]
  - LIVER DISORDER [None]
  - MALAISE [None]
  - NAUSEA [None]
  - VOMITING [None]
